FAERS Safety Report 5647960-9 (Version None)
Quarter: 2008Q1

REPORT INFORMATION
  Report Type: 
  Country: None (occurrence: None)
  Receive Date: 20080229
  Receipt Date: 20080213
  Transmission Date: 20080703
  Serious: No
  Sender: FDA-Public Use
  Company Number: 002#2#2008-00015

PATIENT
  Age: 69 Year
  Sex: Male
  Weight: 83.9154 kg

DRUGS (7)
  1. NEURO-PATCH            (ROTIGOTINE) [Suspect]
     Indication: PARKINSON'S DISEASE
     Dosage: 6MG/24H, 1 IN 1 D, TRANSDERMAL; 4MG/2H, 1 IN 1 D, TRANSDERMAL; 2MG/24H, 1 IN 1 D, TRANSDERMAL
     Route: 062
     Dates: start: 20070901, end: 20071001
  2. NEURO-PATCH            (ROTIGOTINE) [Suspect]
     Indication: PARKINSON'S DISEASE
     Dosage: 6MG/24H, 1 IN 1 D, TRANSDERMAL; 4MG/2H, 1 IN 1 D, TRANSDERMAL; 2MG/24H, 1 IN 1 D, TRANSDERMAL
     Route: 062
     Dates: start: 20071001, end: 20071101
  3. NEURO-PATCH            (ROTIGOTINE) [Suspect]
     Indication: PARKINSON'S DISEASE
     Dosage: 6MG/24H, 1 IN 1 D, TRANSDERMAL; 4MG/2H, 1 IN 1 D, TRANSDERMAL; 2MG/24H, 1 IN 1 D, TRANSDERMAL
     Route: 062
     Dates: start: 20071101, end: 20080101
  4. ARTANE [Concomitant]
  5. AZILECT [Concomitant]
  6. LIPITOR [Concomitant]
  7. ACTONEL [Concomitant]

REACTIONS (4)
  - APPLICATION SITE URTICARIA [None]
  - DRUG INEFFECTIVE [None]
  - PRURITUS [None]
  - RASH [None]
